FAERS Safety Report 8225547-1 (Version None)
Quarter: 2012Q1

REPORT INFORMATION
  Report Type: 
  Country: None (occurrence: None)
  Receive Date: 20120321
  Receipt Date: 20120312
  Transmission Date: 20120608
  Serious: Yes (Other)
  Sender: FDA-Public Use
  Company Number: PHHY2012SE022838

PATIENT
  Age: 61 Year
  Sex: Male

DRUGS (6)
  1. CLOZAPINE [Suspect]
     Dosage: 100 MG, IN THE MORNING
     Route: 048
  2. METFORMIN HEXAL SANDOZ [Concomitant]
  3. NITRAZEPAM [Concomitant]
  4. DIAZEPAM [Concomitant]
  5. CLOZAPINE [Suspect]
     Dosage: 150 MG, AT LUNCH
     Route: 048
  6. CLOZAPINE [Suspect]
     Dosage: 300 MG, IN THE EVENING
     Route: 048

REACTIONS (5)
  - BLOOD PRESSURE INCREASED [None]
  - INCONTINENCE [None]
  - HEART RATE INCREASED [None]
  - POLYDIPSIA [None]
  - DIABETES MELLITUS [None]
